FAERS Safety Report 13664479 (Version 2)
Quarter: 2017Q3

REPORT INFORMATION
  Report Type: Spontaneous
  Country: US (occurrence: US)
  Receive Date: 20170619
  Receipt Date: 20170728
  Transmission Date: 20171127
  Serious: Yes (Hospitalization, Other)
  Sender: FDA-Public Use
  Company Number: US-BAYER-2017-111157

PATIENT
  Age: 42 Year
  Sex: Female

DRUGS (2)
  1. ACETYLSALICYLIC ACID (} 100 MG) [Suspect]
     Active Substance: ASPIRIN
     Indication: SINUSITIS
     Dosage: 650 MG, UNK
  2. ACETYLSALICYLIC ACID (} 100 MG) [Suspect]
     Active Substance: ASPIRIN
     Indication: IMMUNE TOLERANCE INDUCTION
     Dosage: UNK

REACTIONS (4)
  - Arteriospasm coronary [Recovered/Resolved]
  - Eosinophilia [Recovered/Resolved]
  - Stress cardiomyopathy [Recovered/Resolved]
  - Dyspepsia [None]
